FAERS Safety Report 7754323-9 (Version None)
Quarter: 2011Q3

REPORT INFORMATION
  Report Type: 
  Country: None (occurrence: None)
  Receive Date: 20110913
  Receipt Date: 20110831
  Transmission Date: 20111222
  Serious: Yes (Death)
  Sender: FDA-Public Use
  Company Number: UTC-009888

PATIENT
  Age: 50 Year
  Sex: Female
  Weight: 69.09 kg

DRUGS (2)
  1. ADCIRCA [Concomitant]
  2. TYVASO [Suspect]
     Indication: PULMONARY HYPERTENSION
     Dosage: 18-54 MICROGRAMS (40 IN 1 D) , INHALATION
     Route: 055
     Dates: start: 20100915

REACTIONS (1)
  - DEATH [None]
